FAERS Safety Report 7133209-7 (Version None)
Quarter: 2010Q4

REPORT INFORMATION
  Report Type: 
  Country: None (occurrence: None)
  Receive Date: 20101117
  Receipt Date: 20101101
  Transmission Date: 20110411
  Serious: Yes (Hospitalization)
  Sender: FDA-Public Use
  Company Number: 2010003815

PATIENT
  Age: 63 Year
  Sex: Male

DRUGS (2)
  1. ERLOTINIB HYDROCHLORIDE [Suspect]
     Indication: HEAD AND NECK CANCER
     Dosage: 100 MG, QD, ORAL
     Route: 048
     Dates: start: 20100816, end: 20100905
  2. LBH589 [Suspect]
     Indication: PRODUCT USED FOR UNKNOWN INDICATION
     Dosage: 30 MG, DAYS 8, 11, 15 AND 18), ORAL
     Route: 048
     Dates: start: 20100824, end: 20100902

REACTIONS (4)
  - DEHYDRATION [None]
  - HYPOTENSION [None]
  - PNEUMONIA [None]
  - VOMITING [None]
